FAERS Safety Report 5055806-5 (Version None)
Quarter: 2006Q3

REPORT INFORMATION
  Report Type: 
  Country: None (occurrence: None)
  Receive Date: 20060718
  Receipt Date: 20060718
  Transmission Date: 20061208
  Serious: Yes (Other)
  Sender: FDA-Public Use
  Company Number: None

PATIENT
  Sex: Male

DRUGS (6)
  1. KENALOG [Suspect]
     Indication: PAIN
     Dosage: 80 MG EPIDURAL
     Route: 008
     Dates: start: 20060615, end: 20060615
  2. KENALOG [Suspect]
  3. KENALOG [Suspect]
  4. ISOVUE-300 [Concomitant]
  5. BUPIVICINE [Concomitant]
  6. NSS [Concomitant]

REACTIONS (8)
  - BLOOD CORTICOTROPHIN DECREASED [None]
  - BLOOD CORTISOL DECREASED [None]
  - CUSHING'S SYNDROME [None]
  - ERECTILE DYSFUNCTION [None]
  - IATROGENIC INJURY [None]
  - POOR QUALITY DRUG ADMINISTERED [None]
  - PROCEDURAL COMPLICATION [None]
  - THERAPEUTIC PRODUCT CONTAMINATION [None]
